FAERS Safety Report 12623452 (Version 1)
Quarter: 2016Q3

REPORT INFORMATION
  Report Type: Spontaneous
  Country: JP (occurrence: JP)
  Receive Date: 20160804
  Receipt Date: 20160804
  Transmission Date: 20161109
  Serious: Yes (Other)
  Sender: FDA-Public Use
  Company Number: JP-ABBVIE-16P-087-1638684-00

PATIENT
  Sex: Female
  Weight: 47 kg

DRUGS (12)
  1. ULTIVA [Concomitant]
     Active Substance: REMIFENTANIL HYDROCHLORIDE
     Indication: ANALGESIC THERAPY
     Dosage: 0.03-0.2 MCG/KG/MIN
     Route: 041
     Dates: start: 20160523, end: 20160523
  2. BRIDION [Concomitant]
     Active Substance: SUGAMMADEX
     Indication: NEUROMUSCULAR BLOCKADE REVERSAL
     Route: 042
     Dates: start: 20160523, end: 20160523
  3. FENTANYL CITRATE. [Suspect]
     Active Substance: FENTANYL CITRATE
     Indication: ANALGESIC THERAPY
     Dosage: ADMINISTERED AT UNKNOWN TIMES
     Route: 042
     Dates: start: 20160523, end: 20160523
  4. SEVOFLURANE. [Concomitant]
     Active Substance: SEVOFLURANE
     Indication: MAINTENANCE OF ANAESTHESIA
     Route: 055
     Dates: start: 20160523, end: 20160523
  5. CEFAZOLIN SODIUM. [Concomitant]
     Active Substance: CEFAZOLIN SODIUM
     Indication: INFECTION PROPHYLAXIS
     Route: 041
     Dates: start: 20160523, end: 20160523
  6. POPSCAINE [Suspect]
     Active Substance: LEVOBUPIVACAINE HYDROCHLORIDE
     Indication: POSTOPERATIVE ANALGESIA
     Dosage: PERINEURAL FOR RECTUS SHEATH BLOCK
     Route: 050
     Dates: start: 20160523, end: 20160523
  7. HEPARIN [Concomitant]
     Active Substance: HEPARIN SODIUM
     Indication: ANTICOAGULANT THERAPY
     Route: 042
     Dates: start: 20160523, end: 20160523
  8. PROTAMINE SULFATE MOCHIDA [Concomitant]
     Indication: PROCOAGULANT THERAPY
     Route: 042
     Dates: start: 20160523, end: 20160523
  9. SUPRANE [Concomitant]
     Active Substance: DESFLURANE
     Indication: MAINTENANCE OF ANAESTHESIA
     Dosage: 3%-4%
     Route: 055
     Dates: start: 20160523, end: 20160523
  10. ESLAX [Suspect]
     Active Substance: ROCURONIUM BROMIDE
     Indication: HYPOTONIA
     Route: 041
     Dates: start: 20160523, end: 20160523
  11. FENTANYL CITRATE. [Suspect]
     Active Substance: FENTANYL CITRATE
     Dosage: 18 MCG/HR
     Route: 041
     Dates: start: 20160523, end: 20160523
  12. HYDROCORTONE [Concomitant]
     Active Substance: HYDROCORTISONE
     Indication: ALLERGY PROPHYLAXIS
     Route: 042
     Dates: start: 20160523, end: 20160523

REACTIONS (2)
  - Anaesthetic complication [Unknown]
  - Overdose [Recovered/Resolved]

NARRATIVE: CASE EVENT DATE: 20160523
